FAERS Safety Report 16724968 (Version 8)
Quarter: 2020Q1

REPORT INFORMATION
  Report Type: Spontaneous
  Country: US (occurrence: US)
  Receive Date: 20190821
  Receipt Date: 20200128
  Transmission Date: 20200409
  Serious: No
  Sender: FDA-Public Use
  Company Number: US-PFIZER INC-2019356416

PATIENT
  Age: 60 Year
  Sex: Female
  Weight: 54 kg

DRUGS (7)
  1. TOVIAZ [Suspect]
     Active Substance: FESOTERODINE FUMARATE
     Dosage: UNK, DAILY (EVERYDAY)
  2. TOVIAZ [Suspect]
     Active Substance: FESOTERODINE FUMARATE
     Indication: BLADDER DISORDER
     Dosage: UNK
  3. TOVIAZ [Suspect]
     Active Substance: FESOTERODINE FUMARATE
     Dosage: 4 MG, 1X/DAY
     Dates: start: 201806
  4. TOVIAZ [Suspect]
     Active Substance: FESOTERODINE FUMARATE
     Dosage: 4 MG, DAILY
     Dates: start: 201906
  5. TOVIAZ [Suspect]
     Active Substance: FESOTERODINE FUMARATE
     Indication: BLADDER DYSFUNCTION
     Dosage: UNK, ALTERNATE DAY (EVERY OTHER DAY)
  6. TOVIAZ [Suspect]
     Active Substance: FESOTERODINE FUMARATE
     Dosage: 4 MG, AS NEEDED ( PERIODICALLY AS NEEDED)
     Dates: start: 201806
  7. TOVIAZ [Suspect]
     Active Substance: FESOTERODINE FUMARATE
     Dosage: 8 MG, 1X/DAY [TAKE 1 TABLET (8 MG) BY MOUTH 1 TIME PER DAY]
     Route: 048
     Dates: start: 20200113

REACTIONS (2)
  - Inappropriate schedule of product administration [Unknown]
  - Joint swelling [Recovered/Resolved]

NARRATIVE: CASE EVENT DATE: 201806
